FAERS Safety Report 5239964-5 (Version None)
Quarter: 2007Q1

REPORT INFORMATION
  Report Type: 
  Country: None (occurrence: None)
  Receive Date: 20070216
  Receipt Date: 20070206
  Transmission Date: 20070707
  Serious: Yes (Other)
  Sender: FDA-Public Use
  Company Number: FR-PFIZER INC-2006139184

PATIENT
  Sex: Male

DRUGS (3)
  1. ZARONTIN [Suspect]
  2. ZARONTIN [Suspect]
  3. LAMICTAL [Concomitant]

REACTIONS (2)
  - DRUG INEFFECTIVE [None]
  - PETIT MAL EPILEPSY [None]
